FAERS Safety Report 6244275-5 (Version None)
Quarter: 2009Q2

REPORT INFORMATION
  Report Type: 
  Country: None (occurrence: None)
  Receive Date: 20090619
  Receipt Date: 20080415
  Transmission Date: 20091009
  Serious: Yes (Hospitalization)
  Sender: FDA-Public Use
  Company Number: 2008PL000051

PATIENT
  Age: 63 Year
  Sex: Female

DRUGS (1)
  1. IMURAN [Suspect]
     Indication: CROHN'S DISEASE
     Dosage: 100 MG;PO
     Route: 048
     Dates: start: 20051201

REACTIONS (2)
  - ARTHRALGIA [None]
  - PANCREATITIS [None]
